FAERS Safety Report 15184627 (Version 1)
Quarter: 2018Q3

REPORT INFORMATION
  Report Type: Spontaneous
  Country: US (occurrence: US)
  Receive Date: 20180723
  Receipt Date: 20180723
  Transmission Date: 20181010
  Serious: No
  Sender: FDA-Public Use
  Company Number: US-AMGEN-USASP2018073283

PATIENT
  Age: 65 Year
  Sex: Female
  Weight: 66.67 kg

DRUGS (3)
  1. REPATHA [Suspect]
     Active Substance: EVOLOCUMAB
     Dosage: 140 MG, Q3WK
     Route: 058
     Dates: start: 2018
  2. REPATHA [Suspect]
     Active Substance: EVOLOCUMAB
     Indication: TYPE V HYPERLIPIDAEMIA
     Dosage: 140 MG, Q2WK
     Route: 058
     Dates: start: 201601
  3. ESTRADIOL. [Concomitant]
     Active Substance: ESTRADIOL
     Dosage: 10 MUG, UNK

REACTIONS (4)
  - Arthralgia [Recovered/Resolved]
  - Musculoskeletal discomfort [Recovered/Resolved]
  - Myalgia [Recovered/Resolved]
  - Burning sensation [Recovered/Resolved]

NARRATIVE: CASE EVENT DATE: 20180529
